FAERS Safety Report 6109115-3 (Version None)
Quarter: 2009Q1

REPORT INFORMATION
  Report Type: 
  Country: None (occurrence: None)
  Receive Date: 20090310
  Receipt Date: 20090306
  Transmission Date: 20090719
  Serious: Yes (Hospitalization)
  Sender: FDA-Public Use
  Company Number: US-ASTRAZENECA-2006UW16682

PATIENT
  Age: 53 Year
  Sex: Female
  Weight: 65.8 kg

DRUGS (12)
  1. SEROQUEL [Suspect]
     Indication: BIPOLAR DISORDER
     Dosage: 550MG
     Route: 048
  2. SEROQUEL [Suspect]
     Indication: ANXIETY
     Dosage: 550MG
     Route: 048
  3. SEROQUEL [Suspect]
     Dosage: 650-750MG
     Route: 048
  4. SEROQUEL [Suspect]
     Dosage: 650-750MG
     Route: 048
  5. OMICOR [Concomitant]
     Dates: end: 20060801
  6. FIORICET [Concomitant]
  7. CODEINE [Concomitant]
  8. VYTORIN [Concomitant]
     Dates: start: 20060101, end: 20060301
  9. ACTONEL [Concomitant]
  10. ZYPREXA [Concomitant]
  11. ACIPHEX [Concomitant]
  12. NEXIUM [Concomitant]
     Route: 048

REACTIONS (15)
  - BLOOD CHOLESTEROL INCREASED [None]
  - BLOOD GLUCOSE INCREASED [None]
  - CONSTIPATION [None]
  - DYSPHAGIA [None]
  - HYPERSENSITIVITY [None]
  - HYPOTHYROIDISM [None]
  - ILL-DEFINED DISORDER [None]
  - LYMPHADENOPATHY [None]
  - MENOPAUSE [None]
  - MOOD ALTERED [None]
  - OSTEOARTHRITIS [None]
  - RASH [None]
  - RHEUMATOID ARTHRITIS [None]
  - THERAPEUTIC RESPONSE UNEXPECTED [None]
  - WEIGHT INCREASED [None]
